FAERS Safety Report 7677481-3 (Version None)
Quarter: 2011Q3

REPORT INFORMATION
  Report Type: 
  Country: None (occurrence: None)
  Receive Date: 20110811
  Receipt Date: 20110603
  Transmission Date: 20111222
  Serious: No
  Sender: FDA-Public Use
  Company Number: US-BRISTOL-MYERS SQUIBB COMPANY-15804966

PATIENT
  Age: 42 Year
  Sex: Male

DRUGS (2)
  1. RITONAVIR [Concomitant]
  2. REYATAZ [Suspect]
     Dosage: FROM LAST 3 YEARS
     Dates: start: 20080101, end: 20110101

REACTIONS (1)
  - DRUG SCREEN FALSE POSITIVE [None]
